FAERS Safety Report 18281163 (Version 1)
Quarter: 2020Q3

REPORT INFORMATION
  Report Type: Spontaneous
  Country: NO (occurrence: NO)
  Receive Date: 20200918
  Receipt Date: 20200918
  Transmission Date: 20201103
  Serious: Yes (Hospitalization)
  Sender: FDA-Public Use
  Company Number: NO-009507513-2009NOR005321

PATIENT
  Age: 70 Year
  Sex: Female

DRUGS (2)
  1. ALIMTA [Suspect]
     Active Substance: PEMETREXED DISODIUM
     Indication: LUNG NEOPLASM MALIGNANT
     Dosage: TRIPLE TREATMENT WITH PEMBROLIZUMAB, ALIMTA AND CARBOPLATIN STARTED ON 17/10/2019, FOUR COURSES ADMI
     Route: 042
     Dates: start: 20191017, end: 20200603
  2. PEMBROLIZUMAB. [Suspect]
     Active Substance: PEMBROLIZUMAB
     Indication: LUNG NEOPLASM MALIGNANT
     Dosage: TRIPLE TREATMENT WITH PEMBROLIZUMAB, ALIMTA AND CARBOPLATIN STARTED ON 17/10/2019, FOUR COURSES ADMI
     Route: 041
     Dates: start: 20191017, end: 20200603

REACTIONS (2)
  - Acute kidney injury [Not Recovered/Not Resolved]
  - Vertigo [Recovered/Resolved]

NARRATIVE: CASE EVENT DATE: 202005
